FAERS Safety Report 8065615-0 (Version None)
Quarter: 2011Q4

REPORT INFORMATION
  Report Type: 
  Country: None (occurrence: None)
  Receive Date: 20111221
  Receipt Date: 20101228
  Transmission Date: 20120403
  Serious: Yes (Hospitalization, Other)
  Sender: FDA-Public Use
  Company Number: PHHY2010US89696

PATIENT
  Age: 43 Year
  Sex: Female
  Weight: 78 kg

DRUGS (8)
  1. WARFARIN SODIUM [Concomitant]
  2. NEXIUM [Concomitant]
  3. LORTAB PRN (HYDROCODONE BITARTRATE, PARACETAMOL) [Concomitant]
  4. PHENERGAN HCL [Concomitant]
  5. DEMEROL [Concomitant]
  6. HYDREA [Concomitant]
  7. MULTAQ [Concomitant]
  8. EXJADE [Suspect]
     Indication: IRON OVERLOAD
     Dosage: 1500 MG, DAILY, ORAL
     Route: 048
     Dates: start: 20090305, end: 20101124

REACTIONS (1)
  - SICKLE CELL ANAEMIA WITH CRISIS [None]
